FAERS Safety Report 11695901 (Version 1)
Quarter: 2015Q4

REPORT INFORMATION
  Report Type: Spontaneous
  Country: JP (occurrence: JP)
  Receive Date: 20151104
  Receipt Date: 20151104
  Transmission Date: 20160304
  Serious: Yes (Hospitalization, Other)
  Sender: FDA-Public Use
  Company Number: PHJP1998JP004471

PATIENT
  Age: 21 Year
  Sex: Male

DRUGS (2)
  1. TERNELIN [Suspect]
     Active Substance: TIZANIDINE
     Indication: PRODUCT USED FOR UNKNOWN INDICATION
     Dosage: UNK
     Route: 065
  2. VOLTAREN [Suspect]
     Active Substance: DICLOFENAC SODIUM
     Indication: PRODUCT USED FOR UNKNOWN INDICATION
     Dosage: UNK
     Route: 065

REACTIONS (8)
  - Hepatic failure [Unknown]
  - Arthralgia [Unknown]
  - Jaundice [Unknown]
  - Pyrexia [Unknown]
  - Rhabdomyolysis [Unknown]
  - Liver disorder [Unknown]
  - Acute kidney injury [Unknown]
  - Myalgia [Unknown]
